FAERS Safety Report 8908496 (Version 2)
Quarter: 2012Q4

REPORT INFORMATION
  Report Type: Report from Study
  Country: JP (occurrence: JP)
  Receive Date: 20121114
  Receipt Date: 20121130
  Transmission Date: 20130627
  Serious: Yes (Death, Life-Threatening)
  Sender: FDA-Public Use
  Company Number: JP-MPIJNJ-2012-07654

PATIENT

DRUGS (6)
  1. VELCADE [Suspect]
     Indication: MULTIPLE MYELOMA
     Dosage: 1.9 mg, UNK
     Route: 042
     Dates: start: 20120906, end: 20121010
  2. MORPHINE SULFATE [Suspect]
     Indication: CANCER PAIN
     Dosage: UNK
     Route: 065
  3. ALKERAN [Suspect]
     Indication: MULTIPLE MYELOMA
     Dosage: 12 mg, UNK
     Route: 048
     Dates: start: 20120906, end: 20120909
  4. PREDNISOLONE [Suspect]
     Indication: MULTIPLE MYELOMA
     Dosage: 45 mg, UNK
     Route: 048
     Dates: start: 20120906, end: 20120909
  5. ARGAMATE [Concomitant]
     Dosage: 25 g, UNK
     Route: 048
     Dates: start: 20120907
  6. FEBUXOSTAT [Concomitant]
     Dosage: 10 mg, UNK
     Route: 048
     Dates: start: 20120907

REACTIONS (2)
  - Plasma cell myeloma [Fatal]
  - Hyperkalaemia [Recovered/Resolved]
